FAERS Safety Report 5388827-3 (Version None)
Quarter: 2007Q3

REPORT INFORMATION
  Report Type: 
  Country: None (occurrence: None)
  Receive Date: 20070712
  Receipt Date: 20070702
  Transmission Date: 20080115
  Serious: Yes (Hospitalization)
  Sender: FDA-Public Use
  Company Number: B0478257A

PATIENT
  Age: 50 Year
  Sex: Male

DRUGS (2)
  1. CEPHAZOLIN SODIUM (FORMULATION UNKNOWN) (GENERIC) (CEFAZOLIN SODIUM) [Suspect]
     Indication: PROPHYLAXIS
     Dosage: 1 GRAM(S) / THREE TIMES PER DAY / INTRA
  2. CORTICOSTEROID [Concomitant]

REACTIONS (2)
  - HAEMOLYTIC ANAEMIA [None]
  - SPHEROCYTIC ANAEMIA [None]
